FAERS Safety Report 10440739 (Version 1)
Quarter: 2014Q3

REPORT INFORMATION
  Report Type: Spontaneous
  Country: US (occurrence: None)
  Receive Date: 20140908
  Receipt Date: 20140908
  Transmission Date: 20150326
  Serious: Yes (Other)
  Sender: FDA-Public Use
  Company Number: None

PATIENT
  Age: 61 Year
  Sex: Female

DRUGS (1)
  1. NALOXONE [Suspect]
     Active Substance: NALOXONE
     Indication: MENTAL STATUS CHANGES
     Route: 042
     Dates: start: 20140607, end: 20140607

REACTIONS (1)
  - Rash macular [None]

NARRATIVE: CASE EVENT DATE: 20140607
